FAERS Safety Report 5270381-8 (Version None)
Quarter: 2007Q1

REPORT INFORMATION
  Report Type: 
  Country: None (occurrence: None)
  Receive Date: 20070320
  Receipt Date: 20070309
  Transmission Date: 20070707
  Serious: Yes (Death)
  Sender: FDA-Public Use
  Company Number: US-BOEHRINGER INGELHEIM GMBH, GERMANY-2006-DE-06760GD

PATIENT
  Age: 5 Year
  Sex: Male

DRUGS (3)
  1. ASPIRIN [Suspect]
     Indication: MALIGNANT ATROPHIC PAPULOSIS
  2. DIPYRIDAMOLE [Suspect]
     Indication: MALIGNANT ATROPHIC PAPULOSIS
  3. ARIXTRA [Suspect]
     Indication: MALIGNANT ATROPHIC PAPULOSIS

REACTIONS (10)
  - ASCITES [None]
  - BRAIN HERNIATION [None]
  - CEREBELLAR HAEMORRHAGE [None]
  - CONDITION AGGRAVATED [None]
  - MULTI-ORGAN FAILURE [None]
  - PERITONITIS [None]
  - PLEURAL EFFUSION [None]
  - SEPSIS [None]
  - TACHYCARDIA [None]
  - UNRESPONSIVE TO STIMULI [None]
